FAERS Safety Report 5969034-X (Version None)
Quarter: 2008Q4

REPORT INFORMATION
  Report Type: 
  Country: None (occurrence: None)
  Receive Date: 20081125
  Receipt Date: 20081125
  Transmission Date: 20090506
  Serious: Yes (Hospitalization, Other)
  Sender: FDA-Public Use
  Company Number: None

PATIENT
  Age: 70 Year
  Sex: Male
  Weight: 95 kg

DRUGS (10)
  1. VANCOMYCIN [Suspect]
     Indication: WOUND INFECTION
     Dosage: 1G, 1.25 G IV Q12H IV
     Route: 042
     Dates: start: 20080828, end: 20080901
  2. ZOSYN [Suspect]
     Dosage: 3.375G IV Q6H IV
     Route: 042
     Dates: start: 20080828, end: 20080903
  3. AMIODARONE HCL [Concomitant]
  4. ASPIRIN [Concomitant]
  5. DEPAKOTE [Concomitant]
  6. COLACE [Concomitant]
  7. FERROUS GLUC. [Concomitant]
  8. M.V.I. [Concomitant]
  9. VIT E [Concomitant]
  10. ATORVASTATIN CALCIUM [Concomitant]

REACTIONS (4)
  - HAEMODIALYSIS [None]
  - HYPERSENSITIVITY [None]
  - RENAL FAILURE ACUTE [None]
  - TUBULOINTERSTITIAL NEPHRITIS [None]
